FAERS Safety Report 13520844 (Version 1)
Quarter: 2017Q2

REPORT INFORMATION
  Report Type: Report from Study
  Country: FR (occurrence: FR)
  Receive Date: 20170508
  Receipt Date: 20170508
  Transmission Date: 20170830
  Serious: Yes (Other)
  Sender: FDA-Public Use
  Company Number: FR-SUN PHARMACEUTICAL INDUSTRIES LTD-2017US-139888

PATIENT
  Age: 23 Year
  Sex: Male
  Weight: 90 kg

DRUGS (6)
  1. SONIDEGIB [Suspect]
     Active Substance: SONIDEGIB
     Indication: MEDULLOBLASTOMA
     Dosage: 400 MG, QD
     Route: 048
     Dates: start: 20160923, end: 20160925
  2. SONIDEGIB [Suspect]
     Active Substance: SONIDEGIB
     Dosage: 400 MG, QD
     Route: 048
     Dates: start: 20161109, end: 20161116
  3. PARACETAMOL [Concomitant]
     Active Substance: ACETAMINOPHEN
     Indication: PRODUCT USED FOR UNKNOWN INDICATION
     Dosage: UNK
     Route: 065
     Dates: start: 20160921, end: 20160922
  4. SONIDEGIB [Suspect]
     Active Substance: SONIDEGIB
     Dosage: 800 MG, QD
     Route: 048
     Dates: start: 20160926, end: 20161028
  5. OXYCODONE [Concomitant]
     Active Substance: OXYCODONE
     Indication: PRODUCT USED FOR UNKNOWN INDICATION
     Dosage: UNK
     Route: 065
     Dates: start: 20160921, end: 20160922
  6. NEFOPAM [Concomitant]
     Active Substance: NEFOPAM
     Indication: PRODUCT USED FOR UNKNOWN INDICATION
     Dosage: UNK
     Route: 065
     Dates: start: 20160921, end: 20160922

REACTIONS (7)
  - Gastrointestinal disorder [Not Recovered/Not Resolved]
  - Blood creatine phosphokinase increased [Recovered/Resolved]
  - Disease progression [Unknown]
  - Tumour pain [Unknown]
  - Vomiting [Recovered/Resolved]
  - C-reactive protein decreased [Unknown]
  - Drug ineffective [Unknown]

NARRATIVE: CASE EVENT DATE: 2016
